FAERS Safety Report 20467264 (Version 1)
Quarter: 2022Q1

REPORT INFORMATION
  Report Type: Spontaneous
  Country: US (occurrence: US)
  Receive Date: 20220214
  Receipt Date: 20220214
  Transmission Date: 20220423
  Serious: No
  Sender: FDA-Public Use
  Company Number: ENDG21-03244

PATIENT
  Sex: Female

DRUGS (1)
  1. PREVIFEM [Suspect]
     Active Substance: ETHINYL ESTRADIOL\NORGESTIMATE
     Indication: Contraception
     Dosage: 1 DF, DAILY
     Route: 065
     Dates: start: 2020, end: 2021

REACTIONS (1)
  - Blood creatinine increased [Not Recovered/Not Resolved]
